FAERS Safety Report 4452196-3 (Version None)
Quarter: 2004Q3

REPORT INFORMATION
  Report Type: 
  Country: None (occurrence: None)
  Receive Date: 20040917
  Receipt Date: 20040907
  Transmission Date: 20050211
  Serious: Yes (Other)
  Sender: FDA-Public Use
  Company Number: PHRM2004FR02788

PATIENT
  Age: 27 Year
  Sex: Female

DRUGS (2)
  1. TRILEPTAL [Suspect]
     Indication: NEURALGIA
     Dosage: 600 MG, BID
     Route: 048
     Dates: end: 20040907
  2. NEURONTIN [Concomitant]
     Dosage: UNK, UNK
     Route: 048

REACTIONS (1)
  - NEUTROPENIA [None]
